FAERS Safety Report 4335727-3 (Version None)
Quarter: 2004Q1

REPORT INFORMATION
  Report Type: 
  Country: None (occurrence: None)
  Receive Date: 20040329
  Receipt Date: 20031120
  Transmission Date: 20041129
  Serious: No
  Sender: FDA-Public Use
  Company Number: USA031153087

PATIENT
  Age: 52 Year
  Sex: Female
  Weight: 68 kg

DRUGS (2)
  1. STRATTERA [Suspect]
     Indication: ATTENTION DEFICIT/HYPERACTIVITY DISORDER
     Dosage: 40 MG/DAY
     Dates: start: 20031107, end: 20031108
  2. CODEINE [Concomitant]

REACTIONS (3)
  - DYSPNOEA [None]
  - HEART RATE INCREASED [None]
  - PALPITATIONS [None]
